FAERS Safety Report 20947394 (Version 1)
Quarter: 2022Q2

REPORT INFORMATION
  Report Type: Report from Study
  Country: US (occurrence: US)
  Receive Date: 20220610
  Receipt Date: 20220610
  Transmission Date: 20220721
  Serious: Yes (Death, Other)
  Sender: FDA-Public Use
  Company Number: US-Taiho Oncology Inc-EU-2022-01446

PATIENT
  Age: 65 Year
  Sex: Male

DRUGS (13)
  1. LONSURF [Suspect]
     Active Substance: TIPIRACIL HYDROCHLORIDE\TRIFLURIDINE
     Indication: Colon cancer
     Dosage: CYCLE, DOSE AND FREQUENCY UNKNOWN
     Route: 048
  2. INSULIN NOS [Concomitant]
     Active Substance: INSULIN NOS
  3. LACTULOSE [Concomitant]
     Active Substance: LACTULOSE
  4. MEGASTROL [Concomitant]
  5. PANTOPRAZOLE [Concomitant]
     Active Substance: PANTOPRAZOLE
  6. PRAVASTATIN [Concomitant]
     Active Substance: PRAVASTATIN
  7. HEPARIN [Concomitant]
     Active Substance: HEPARIN SODIUM
  8. HYDROMORPHONE [Concomitant]
     Active Substance: HYDROMORPHONE
  9. LOPERAMIDE [Concomitant]
     Active Substance: LOPERAMIDE
  10. LORAZEPAM [Concomitant]
     Active Substance: LORAZEPAM
  11. NALOXONE [Concomitant]
     Active Substance: NALOXONE
  12. ONDANSETRON [Concomitant]
     Active Substance: ONDANSETRON
  13. OXYCODONE [Concomitant]
     Active Substance: OXYCODONE

REACTIONS (2)
  - Sepsis [Fatal]
  - Renal impairment [Unknown]
